FAERS Safety Report 24912152 (Version 1)
Quarter: 2025Q1

REPORT INFORMATION
  Report Type: Spontaneous
  Country: US (occurrence: US)
  Receive Date: 20250131
  Receipt Date: 20250131
  Transmission Date: 20250409
  Serious: No
  Sender: SANOFI AVENTIS
  Company Number: US-SA-2025SA030478

PATIENT
  Sex: Female

DRUGS (11)
  1. DUPIXENT [Suspect]
     Active Substance: DUPILUMAB
     Indication: Asthma
     Dosage: 300 MG, QOW
     Route: 058
  2. ADVAIR HFA [Concomitant]
     Active Substance: FLUTICASONE PROPIONATE\SALMETEROL XINAFOATE
  3. ALPRAZOLAM [Concomitant]
     Active Substance: ALPRAZOLAM
  4. CARBAMAZEPINE [Concomitant]
     Active Substance: CARBAMAZEPINE
  5. DONEPEZIL HYDROCHLORIDE [Concomitant]
     Active Substance: DONEPEZIL HYDROCHLORIDE
  6. GABAPENTIN [Concomitant]
     Active Substance: GABAPENTIN
  7. IBUPROFEN [Concomitant]
     Active Substance: IBUPROFEN
  8. OXYBUTYNIN CHLORIDE [Concomitant]
     Active Substance: OXYBUTYNIN CHLORIDE
  9. SPIRIVA RESPIMAT [Concomitant]
     Active Substance: TIOTROPIUM BROMIDE
  10. VENTOLIN HFA [Concomitant]
     Active Substance: ALBUTEROL SULFATE
  11. WELLBUTRIN [Concomitant]
     Active Substance: BUPROPION HYDROCHLORIDE

REACTIONS (4)
  - Pain in extremity [Recovering/Resolving]
  - Neck pain [Recovering/Resolving]
  - Back pain [Recovering/Resolving]
  - Movement disorder [Recovering/Resolving]
